FAERS Safety Report 9101832 (Version 1)
Quarter: 2013Q1

REPORT INFORMATION
  Report Type: Spontaneous
  Country: US (occurrence: None)
  Receive Date: 20130220
  Receipt Date: 20130220
  Transmission Date: 20140127
  Serious: Yes (Other)
  Sender: FDA-Public Use
  Company Number: None

PATIENT
  Age: 37 Year
  Sex: Male

DRUGS (1)
  1. AUBAGIO [Suspect]
     Dosage: 14 MG  QAM  ORAL?FROM  01162013  TO  PRESENT
     Route: 048
     Dates: start: 20130116

REACTIONS (2)
  - Headache [None]
  - Arthropathy [None]
